FAERS Safety Report 6493052-9 (Version None)
Quarter: 2009Q4

REPORT INFORMATION
  Report Type: 
  Country: None (occurrence: None)
  Receive Date: 20091214
  Receipt Date: 20091203
  Transmission Date: 20100525
  Serious: Yes (Hospitalization)
  Sender: FDA-Public Use
  Company Number: DE-AMGEN-UK378114

PATIENT
  Age: 65 Year

DRUGS (4)
  1. NEULASTA [Suspect]
     Indication: CHEMOTHERAPY
  2. DOCETAXEL [Suspect]
     Route: 041
     Dates: start: 20090914
  3. EPIRUBICIN [Suspect]
     Route: 041
     Dates: start: 20090914
  4. CYCLOPHOSPHAMIDE [Suspect]
     Route: 041
     Dates: start: 20090914

REACTIONS (3)
  - COUGH [None]
  - DYSPNOEA [None]
  - INFECTION [None]
